FAERS Safety Report 23617215 (Version 2)
Quarter: 2024Q2

REPORT INFORMATION
  Report Type: Spontaneous
  Country: US (occurrence: US)
  Receive Date: 20240311
  Receipt Date: 20240426
  Transmission Date: 20240716
  Serious: No
  Sender: FDA-Public Use
  Company Number: US-GSKCCFUS-Case-01953122_AE-108538

PATIENT
  Age: 79 Year
  Sex: Female

DRUGS (1)
  1. BREO ELLIPTA [Suspect]
     Active Substance: FLUTICASONE FUROATE\VILANTEROL TRIFENATATE
     Indication: Product used for unknown indication
     Dosage: UNK, QD, 200/25 MCG
     Route: 055

REACTIONS (4)
  - Oropharyngeal pain [Unknown]
  - Pharyngeal erythema [Unknown]
  - Oropharyngeal discomfort [Unknown]
  - Product complaint [Unknown]

NARRATIVE: CASE EVENT DATE: 20240225
